FAERS Safety Report 5890578-3 (Version None)
Quarter: 2008Q3

REPORT INFORMATION
  Report Type: 
  Country: None (occurrence: None)
  Receive Date: 20080922
  Receipt Date: 20080911
  Transmission Date: 20090109
  Serious: Yes (Death, Hospitalization)
  Sender: FDA-Public Use
  Company Number: US-ROCHE-585699

PATIENT
  Sex: Female
  Weight: 49.9 kg

DRUGS (2)
  1. CAPECITABINE [Suspect]
     Route: 065
     Dates: start: 20080108
  2. CAPECITABINE [Suspect]
     Route: 065
     Dates: end: 20080401

REACTIONS (3)
  - DIARRHOEA [None]
  - DISEASE PROGRESSION [None]
  - NAUSEA [None]
